FAERS Safety Report 17654700 (Version 1)
Quarter: 2020Q2

REPORT INFORMATION
  Report Type: Spontaneous
  Country: US (occurrence: US)
  Receive Date: 20200410
  Receipt Date: 20200410
  Transmission Date: 20200713
  Serious: Yes (Hospitalization)
  Sender: FDA-Public Use
  Company Number: US-EMCURE PHARMACEUTICALS LTD-2020-EPL-000386

PATIENT
  Age: 63 Year
  Sex: Female

DRUGS (9)
  1. ROSUVASTATIN. [Concomitant]
     Active Substance: ROSUVASTATIN
     Indication: HYPERLIPIDAEMIA
     Dosage: UNK
  2. RIFAMPIN. [Suspect]
     Active Substance: RIFAMPIN
     Indication: HIDRADENITIS
     Dosage: 300 MILLIGRAM, BID
  3. CLINDAMYCIN. [Suspect]
     Active Substance: CLINDAMYCIN
     Indication: HIDRADENITIS
     Dosage: 300 MILLIGRAM, BID
  4. GENTAMICIN. [Concomitant]
     Active Substance: GENTAMICIN
     Indication: HIDRADENITIS
     Dosage: UNK
     Route: 061
  5. SOLIFENACIN [Concomitant]
     Active Substance: SOLIFENACIN
     Dosage: UNK
  6. LISINOPRIL. [Concomitant]
     Active Substance: LISINOPRIL
     Indication: HYPERTENSION
     Dosage: UNK
  7. ASPIRIN. [Concomitant]
     Active Substance: ASPIRIN
  8. DAPSONE. [Concomitant]
     Active Substance: DAPSONE
     Indication: HIDRADENITIS
     Dosage: UNK
  9. ATENOLOL. [Concomitant]
     Active Substance: ATENOLOL
     Indication: HYPERTENSION
     Dosage: UNK

REACTIONS (3)
  - Irritable bowel syndrome [Unknown]
  - Off label use [Unknown]
  - Clostridium difficile infection [Unknown]
